FAERS Safety Report 26201827 (Version 1)
Quarter: 2025Q4

REPORT INFORMATION
  Report Type: Spontaneous
  Country: EU (occurrence: EU)
  Receive Date: 20251226
  Receipt Date: 20251226
  Transmission Date: 20260118
  Serious: Yes (Life-Threatening, Hospitalization)
  Sender: MACLEODS
  Company Number: EU-MACLEODS PHARMA-MAC2025057328

PATIENT

DRUGS (1)
  1. RIVAROXABAN [Suspect]
     Active Substance: RIVAROXABAN
     Indication: Anticoagulant therapy
     Route: 065

REACTIONS (4)
  - Hepatic haemorrhage [Recovered/Resolved]
  - Subcapsular hepatic haematoma [Recovered/Resolved]
  - Vascular pseudoaneurysm [Recovered/Resolved]
  - Hepatic rupture [Recovered/Resolved]
